FAERS Safety Report 16957734 (Version 1)
Quarter: 2019Q4

REPORT INFORMATION
  Report Type: Spontaneous
  Country: FR (occurrence: FR)
  Receive Date: 20191024
  Receipt Date: 20191024
  Transmission Date: 20200122
  Serious: Yes (Other)
  Sender: FDA-Public Use
  Company Number: FR-OTSUKA-2019_036208

PATIENT
  Age: 29 Year
  Sex: Male

DRUGS (1)
  1. JINARC [Suspect]
     Active Substance: TOLVAPTAN
     Indication: CONGENITAL CYSTIC KIDNEY DISEASE
     Dosage: 60 MG, UNK
     Route: 048
     Dates: start: 20191007

REACTIONS (4)
  - Anxiety [Recovered/Resolved]
  - Disorientation [Recovered/Resolved]
  - Gait disturbance [Recovered/Resolved]
  - Affective disorder [Recovered/Resolved]

NARRATIVE: CASE EVENT DATE: 20191008
